FAERS Safety Report 22042301 (Version 3)
Quarter: 2023Q1

REPORT INFORMATION
  Report Type: Spontaneous
  Country: FR (occurrence: FR)
  Receive Date: 20230227
  Receipt Date: 20230322
  Transmission Date: 20230418
  Serious: Yes (Other)
  Sender: FDA-Public Use
  Company Number: FR-BIOGEN-2023BI01189804

PATIENT
  Age: 65 Year
  Sex: Female

DRUGS (1)
  1. TECFIDERA [Suspect]
     Active Substance: DIMETHYL FUMARATE
     Indication: Secondary progressive multiple sclerosis
     Route: 050
     Dates: end: 202301

REACTIONS (4)
  - Renal failure [Not Recovered/Not Resolved]
  - Neuroendocrine carcinoma metastatic [Not Recovered/Not Resolved]
  - Off label use [Unknown]
  - Lymphopenia [Not Recovered/Not Resolved]

NARRATIVE: CASE EVENT DATE: 20220601
